FAERS Safety Report 25670917 (Version 4)
Quarter: 2025Q4

REPORT INFORMATION
  Report Type: Report from Study
  Country: EU (occurrence: EU)
  Receive Date: 20250812
  Receipt Date: 20251016
  Transmission Date: 20260117
  Serious: Yes (Hospitalization)
  Sender: EXELIXIS
  Company Number: EU-IPSEN Group, Research and Development-2025-07203

PATIENT

DRUGS (18)
  1. CABOZANTINIB [Suspect]
     Active Substance: CABOZANTINIB
     Indication: Renal cell carcinoma
     Dosage: 40 MG, QD (REASON DOSE INTERVAL ENDED: RADIOTHERAPY)
     Dates: start: 20250124, end: 20250310
  2. CABOZANTINIB [Suspect]
     Active Substance: CABOZANTINIB
     Dosage: 40 MG, QD (REASON DOSE INTERVAL ENDED: CLINICAL / INVESTIGATOR DECISION )
     Dates: start: 20250318, end: 20250701
  3. CABOZANTINIB [Suspect]
     Active Substance: CABOZANTINIB
     Dosage: 60 MG, QD (REASON DOSE INTERVAL ENDED: CLINICAL / INVESTIGATOR DECISION)
     Dates: start: 20250624
  4. CABOZANTINIB [Suspect]
     Active Substance: CABOZANTINIB
     Dosage: 60 MG, QD (REASON DOSE INTERVAL ENDED: RADIOTHERAPY)
     Dates: start: 20250702, end: 20250706
  5. CABOZANTINIB [Suspect]
     Active Substance: CABOZANTINIB
     Dosage: 60 MG, QD (REASON DOSE INTERVAL ENDED: OTHER: HOSPITALIZATION)
     Dates: start: 20250717, end: 20250727
  6. NIVOLUMAB [Concomitant]
     Active Substance: NIVOLUMAB
     Dosage: 480 MG
     Dates: start: 20250218
  7. NIVOLUMAB [Concomitant]
     Active Substance: NIVOLUMAB
     Dosage: 480 MG
     Dates: start: 20250325
  8. NIVOLUMAB [Concomitant]
     Active Substance: NIVOLUMAB
     Dosage: 480 MG
     Dates: start: 20250422
  9. NIVOLUMAB [Concomitant]
     Active Substance: NIVOLUMAB
     Dosage: 480 MG
     Dates: start: 20250528
  10. NIVOLUMAB [Concomitant]
     Active Substance: NIVOLUMAB
     Dosage: 480 MG
     Dates: start: 20250624
  11. ACETAMINOPHEN [Concomitant]
     Active Substance: ACETAMINOPHEN
     Indication: Headache
     Dosage: AS NEEDED
     Route: 048
     Dates: start: 20250210
  12. TRAMADOL [Concomitant]
     Active Substance: TRAMADOL
     Indication: Back pain
     Dosage: 100 MG, BID
     Route: 048
     Dates: start: 20250706
  13. MEDROL [Concomitant]
     Active Substance: METHYLPREDNISOLONE
     Indication: Decreased appetite
     Dosage: 16 MG, QD
     Route: 048
     Dates: start: 20250716
  14. COMBIVENT [Concomitant]
     Active Substance: ALBUTEROL SULFATE\IPRATROPIUM BROMIDE
     Indication: Dyspnoea
     Dosage: 1 CAPSULE, 4 TIMES PER DAY
     Route: 055
     Dates: start: 20250716
  15. Pantomed [Concomitant]
     Indication: Prophylaxis
     Dosage: 40 MG, QD
     Route: 048
     Dates: start: 20250728
  16. SODIUM PICOSULFATE [Concomitant]
     Active Substance: SODIUM PICOSULFATE
     Indication: Constipation
     Dosage: 7,5 MG/1 ML 10 OTHER DROPS QD
     Route: 048
     Dates: start: 20250801, end: 20250805
  17. Trianal cream [Concomitant]
     Indication: Haemorrhoids
     Dosage: 1 APPLICATION
     Route: 054
     Dates: start: 20250728
  18. MOVICOL [Concomitant]
     Active Substance: POLYETHYLENE GLYCOL 3350\POTASSIUM CHLORIDE\SODIUM BICARBONATE\SODIUM CHLORIDE
     Indication: Constipation
     Dosage: UNK
     Route: 048
     Dates: start: 20250716

REACTIONS (8)
  - Epilepsy [Recovered/Resolved]
  - Pelvic abscess [Recovered/Resolved with Sequelae]
  - Anal fistula [Recovered/Resolved with Sequelae]
  - Back pain [Not Recovered/Not Resolved]
  - Heart failure with midrange ejection fraction [Recovered/Resolved]
  - Blood creatine phosphokinase increased [Recovered/Resolved]
  - Fatigue [Recovered/Resolved with Sequelae]
  - Hypertension [Recovered/Resolved with Sequelae]

NARRATIVE: CASE EVENT DATE: 20250204
